FAERS Safety Report 6130130-8 (Version None)
Quarter: 2009Q1

REPORT INFORMATION
  Report Type: 
  Country: None (occurrence: None)
  Receive Date: 20090324
  Receipt Date: 20090318
  Transmission Date: 20090719
  Serious: Yes (Hospitalization)
  Sender: FDA-Public Use
  Company Number: US-BRISTOL-MYERS SQUIBB COMPANY-14509798

PATIENT
  Age: 67 Year
  Sex: Male
  Weight: 68 kg

DRUGS (3)
  1. ERBITUX [Suspect]
     Indication: SQUAMOUS CELL CARCINOMA
     Dosage: INI ON 30DEC08. WKLY C225 FOR 8 WEEKS, C225 458 MG IV.3532 MG ON 16-FEB-2009, INTERRUPTED FOR 7DAYS
     Route: 042
     Dates: start: 20090202, end: 20090202
  2. CISPLATIN [Suspect]
     Indication: SQUAMOUS CELL CARCINOMA
     Dosage: INITIATED ON 30DEC08. CISPLATIN 2TIMES EVERY 3 WEEKS, 180 MG IV.
     Route: 042
     Dates: start: 20090126, end: 20090126
  3. RADIATION THERAPY [Suspect]
     Indication: SQUAMOUS CELL CARCINOMA
     Dosage: 1 DF=6600 CGY TOTAL.RECD DAILY FOR 6WKS,INITD ON 30DEC08,INTERR+RESTART ON 16FEB09,6600 CGY,FRAC35.
     Dates: start: 20090211, end: 20090211

REACTIONS (6)
  - HAEMOGLOBIN DECREASED [None]
  - HYPOALBUMINAEMIA [None]
  - LYMPHOPENIA [None]
  - PNEUMONIA [None]
  - PYREXIA [None]
  - WHITE BLOOD CELL COUNT DECREASED [None]
